FAERS Safety Report 5635159-1 (Version None)
Quarter: 2008Q1

REPORT INFORMATION
  Report Type: 
  Country: None (occurrence: None)
  Receive Date: 20080222
  Receipt Date: 20080213
  Transmission Date: 20080703
  Serious: Yes (Hospitalization)
  Sender: FDA-Public Use
  Company Number: JP-PFIZER INC-2008008106

PATIENT
  Age: 25 Year
  Sex: Female

DRUGS (2)
  1. NORVASC [Suspect]
     Route: 048
     Dates: start: 20071214, end: 20071214
  2. BLOPRESS [Suspect]
     Route: 048
     Dates: start: 20071214, end: 20071214

REACTIONS (3)
  - HYPOTHERMIA [None]
  - INTENTIONAL DRUG MISUSE [None]
  - SHOCK [None]
